FAERS Safety Report 17429727 (Version 1)
Quarter: 2020Q1

REPORT INFORMATION
  Report Type: Spontaneous
  Country: US (occurrence: US)
  Receive Date: 20200203
  Receipt Date: 20200203
  Transmission Date: 20200409
  Serious: Yes (Hospitalization)
  Sender: FDA-Public Use
  Company Number: None

PATIENT
  Age: 39 Year
  Sex: Male
  Weight: 156 kg

DRUGS (2)
  1. FUROSEMIDE (FUROSEMIDE 10MG/ML INJ) [Suspect]
     Active Substance: FUROSEMIDE
     Indication: CARDIAC FAILURE CONGESTIVE
     Route: 042
     Dates: start: 20180319, end: 20180319
  2. HALOPERIDOL (HALOPERIDOL 2MG TAB) [Suspect]
     Active Substance: HALOPERIDOL
     Indication: SCHIZOPHRENIA
     Route: 048
     Dates: start: 20180319, end: 20180319

REACTIONS (5)
  - Cardiac failure [None]
  - Schizoaffective disorder [None]
  - Hyponatraemia [None]
  - Acute respiratory failure [None]
  - Fluid overload [None]

NARRATIVE: CASE EVENT DATE: 20180319
